FAERS Safety Report 10653364 (Version 2)
Quarter: 2015Q1

REPORT INFORMATION
  Report Type: Spontaneous
  Country: NL (occurrence: NL)
  Receive Date: 20141215
  Receipt Date: 20150120
  Transmission Date: 20150720
  Serious: Yes (Other)
  Sender: FDA-Public Use
  Company Number: NL-ABBVIE-14K-114-1319269-00

PATIENT
  Age: 49 Year
  Sex: Male
  Weight: 83 kg

DRUGS (2)
  1. HUMIRA [Suspect]
     Active Substance: ADALIMUMAB
     Indication: PRODUCT USED FOR UNKNOWN INDICATION
     Route: 065
     Dates: start: 2013, end: 201412
  2. PURI NETHOL [Concomitant]
     Indication: CROHN^S DISEASE
     Route: 048
     Dates: start: 20131001, end: 20140509

REACTIONS (4)
  - Leukopenia [Unknown]
  - Visual impairment [Unknown]
  - Oedema peripheral [Unknown]
  - Blindness [Not Recovered/Not Resolved]

NARRATIVE: CASE EVENT DATE: 2013
